FAERS Safety Report 6815422-9 (Version None)
Quarter: 2010Q3

REPORT INFORMATION
  Report Type: 
  Country: None (occurrence: None)
  Receive Date: 20100702
  Receipt Date: 20100621
  Transmission Date: 20110219
  Serious: Yes (Hospitalization)
  Sender: FDA-Public Use
  Company Number: CA-JNJFOC-20100607094

PATIENT
  Sex: Male

DRUGS (1)
  1. REMICADE [Suspect]
     Indication: ANKYLOSING SPONDYLITIS
     Route: 042

REACTIONS (6)
  - APPENDICECTOMY [None]
  - INFUSION RELATED REACTION [None]
  - LARYNGEAL INJURY [None]
  - PRURITUS [None]
  - TRACHEAL INJURY [None]
  - URETHRAL INJURY [None]
